FAERS Safety Report 5189053-3 (Version None)
Quarter: 2006Q4

REPORT INFORMATION
  Report Type: 
  Country: None (occurrence: None)
  Receive Date: 20061221
  Receipt Date: 20061212
  Transmission Date: 20070319
  Serious: Yes (Hospitalization)
  Sender: FDA-Public Use
  Company Number: FR-ELI_LILLY_AND_COMPANY-FR200612001895

PATIENT
  Age: 3 Week
  Sex: Female

DRUGS (2)
  1. PROZAC [Suspect]
     Route: 064
     Dates: end: 20060821
  2. NORDAZ [Concomitant]
     Route: 064
     Dates: end: 20060821

REACTIONS (5)
  - AGITATION NEONATAL [None]
  - DRUG EXPOSURE DURING PREGNANCY [None]
  - DRUG WITHDRAWAL SYNDROME NEONATAL [None]
  - HYPERTONIA NEONATAL [None]
  - VOMITING NEONATAL [None]
